FAERS Safety Report 10596689 (Version 1)
Quarter: 2014Q4

REPORT INFORMATION
  Report Type: Spontaneous
  Country: US (occurrence: US)
  Receive Date: 20141120
  Receipt Date: 20141120
  Transmission Date: 20150529
  Serious: No
  Sender: FDA-Public Use
  Company Number: US-PFIZER INC-2014319906

PATIENT
  Age: 77 Year
  Sex: Male
  Weight: 118 kg

DRUGS (11)
  1. LYRICA [Suspect]
     Active Substance: PREGABALIN
     Dosage: 150 MG, UNK
  2. THIAMINE [Concomitant]
     Active Substance: THIAMINE
     Dosage: 500 MG, 1X/DAY
     Route: 048
  3. PRAVASTATIN [Concomitant]
     Active Substance: PRAVASTATIN\PRAVASTATIN SODIUM
     Indication: BLOOD CHOLESTEROL INCREASED
     Dosage: 40 MG, 1X/DAY
     Route: 048
  4. LYRICA [Suspect]
     Active Substance: PREGABALIN
     Indication: DIABETIC NEUROPATHY
     Dosage: 100 MG, 2X/DAY
     Route: 048
     Dates: start: 201402, end: 20141117
  5. LATANOPROST. [Concomitant]
     Active Substance: LATANOPROST
     Dosage: 1 GTT, UNK (AT NIGHT, AT BEDTIME)
  6. LASIX [Concomitant]
     Active Substance: FUROSEMIDE
     Indication: FLUID RETENTION
     Dosage: 40 MG, 1X/DAY
     Route: 048
  7. VITAMIN B12 [Concomitant]
     Active Substance: CYANOCOBALAMIN
     Dosage: 100 MG, UNK (SHOT ONCE A MONTH)
  8. INSULIN [Concomitant]
     Active Substance: INSULIN NOS
     Dosage: UNK (70 UNITS IN THE MORNING AND 55 UNITS WITH HIS EVENING MEAL-BOTH DOSES PER INJECTION)
  9. VERAPAMIL [Concomitant]
     Active Substance: VERAPAMIL HYDROCHLORIDE
     Indication: HYPERTENSION
     Dosage: 180 MG, 1X/DAY
     Route: 048
  10. CLOPIDOGREL [Concomitant]
     Active Substance: CLOPIDOGREL BISULFATE
     Indication: ANTICOAGULANT THERAPY
     Dosage: 75 MG, 1X/DAY
     Route: 048
  11. FOLIC ACID. [Concomitant]
     Active Substance: FOLIC ACID
     Dosage: 1 MG, 1X/DAY
     Route: 048

REACTIONS (1)
  - Swelling [Unknown]
